FAERS Safety Report 23667690 (Version 1)
Quarter: 2024Q1

REPORT INFORMATION
  Report Type: Report from Study
  Country: US (occurrence: US)
  Receive Date: 20240325
  Receipt Date: 20240325
  Transmission Date: 20240410
  Serious: Yes (Other)
  Sender: FDA-Public Use
  Company Number: US-JNJFOC-20240343751

PATIENT
  Age: 26 Year
  Sex: Male

DRUGS (3)
  1. SPRAVATO [Suspect]
     Active Substance: ESKETAMINE
     Indication: Depression
     Dosage: 84 MG, 8 DOSES
     Dates: start: 20240209, end: 20240307
  2. SPRAVATO [Suspect]
     Active Substance: ESKETAMINE
     Dosage: 84 MG, 2 DOSES
     Dates: start: 20240313, end: 20240320
  3. AFRIN [Suspect]
     Active Substance: OXYMETAZOLINE
     Indication: Nasal congestion
     Route: 045
     Dates: start: 2024

REACTIONS (7)
  - Suicidal ideation [Unknown]
  - Ex-tobacco user [Unknown]
  - Alcohol use [Unknown]
  - Multiple allergies [Unknown]
  - Nasal congestion [Unknown]
  - Dissociation [Unknown]
  - Drug ineffective [Unknown]

NARRATIVE: CASE EVENT DATE: 20240101
